FAERS Safety Report 9155879 (Version 2)
Quarter: 2014Q3

REPORT INFORMATION
  Report Type: Report from Study
  Country: MX (occurrence: MX)
  Receive Date: 20130311
  Receipt Date: 20140805
  Transmission Date: 20150326
  Serious: Yes (Hospitalization, Other)
  Sender: FDA-Public Use
  Company Number: PHHY2013MX023359

PATIENT
  Age: 88 Year
  Sex: Male

DRUGS (5)
  1. ONBREZ [Suspect]
     Active Substance: INDACATEROL
     Indication: CHRONIC OBSTRUCTIVE PULMONARY DISEASE
     Dosage: 150 UG, CAPSULES DAILY
     Route: 055
     Dates: start: 201201, end: 201212
  2. EUTEBROL [Concomitant]
     Indication: NERVOUS SYSTEM DISORDER
     Dosage: 1 UNK, UNK
  3. ONBREZ [Suspect]
     Active Substance: INDACATEROL
     Dosage: 150 UG, DAILY
     Route: 055
     Dates: start: 20140718
  4. CAPTOPRIL. [Concomitant]
     Active Substance: CAPTOPRIL
     Indication: BLOOD PRESSURE
     Dosage: 1 DF, UNK
  5. PLAVIX [Concomitant]
     Active Substance: CLOPIDOGREL BISULFATE
     Indication: NERVOUS SYSTEM DISORDER
     Dosage: 1 DF, UNK

REACTIONS (2)
  - Pain in extremity [Recovered/Resolved]
  - Cerebral infarction [Recovering/Resolving]

NARRATIVE: CASE EVENT DATE: 201212
